FAERS Safety Report 7940639-X (Version None)
Quarter: 2011Q4

REPORT INFORMATION
  Report Type: 
  Country: None (occurrence: None)
  Receive Date: 20111128
  Receipt Date: 20111114
  Transmission Date: 20120403
  Serious: Yes (Hospitalization)
  Sender: FDA-Public Use
  Company Number: DE-ELI_LILLY_AND_COMPANY-DE201111004010

PATIENT
  Age: 80 Year
  Sex: Female

DRUGS (5)
  1. FORTEO [Suspect]
     Indication: OSTEOPOROSIS
     Dosage: UNK, QD
     Route: 058
     Dates: start: 20101112
  2. NOVAMINSULFON [Concomitant]
     Indication: ANALGESIC THERAPY
  3. OMEPRAZOLE [Concomitant]
     Indication: GASTROINTESTINAL DISORDER
  4. CALCIUM +VIT D [Concomitant]
  5. AMLODIPINE BESYLATE [Concomitant]
     Indication: HYPERTENSION

REACTIONS (3)
  - CRUSH INJURY [None]
  - INJECTION SITE HAEMORRHAGE [None]
  - LUMBAR VERTEBRAL FRACTURE [None]
